FAERS Safety Report 5712364-7 (Version None)
Quarter: 2008Q2

REPORT INFORMATION
  Report Type: 
  Country: None (occurrence: None)
  Receive Date: 20080418
  Receipt Date: 20080326
  Transmission Date: 20081010
  Serious: Yes (Death)
  Sender: FDA-Public Use
  Company Number: 2008SP005969

PATIENT
  Age: 68 Year
  Sex: Male

DRUGS (1)
  1. DACARBAZINE [Suspect]
     Indication: METASTATIC MALIGNANT MELANOMA
     Dosage: 1710 MG;
     Dates: start: 20051010, end: 20060321

REACTIONS (1)
  - DISEASE PROGRESSION [None]
